FAERS Safety Report 5636931-4 (Version None)
Quarter: 2008Q1

REPORT INFORMATION
  Report Type: 
  Country: None (occurrence: None)
  Receive Date: 20080225
  Receipt Date: 20080214
  Transmission Date: 20080703
  Serious: Yes (Life-Threatening)
  Sender: FDA-Public Use
  Company Number: JP-ROCHE-548118

PATIENT
  Age: 70 Year
  Sex: Male

DRUGS (6)
  1. TAMIFLU [Suspect]
     Route: 048
     Dates: start: 20080207, end: 20080209
  2. LOXONIN [Suspect]
     Indication: DRUG USE FOR UNKNOWN INDICATION
     Route: 065
     Dates: start: 20080206
  3. PL [Suspect]
     Indication: DRUG USE FOR UNKNOWN INDICATION
     Route: 048
     Dates: start: 20080206
  4. SELBEX [Suspect]
     Indication: DRUG USE FOR UNKNOWN INDICATION
     Dosage: DOSE FORM REPORTED AS ORAL FORMULATION.
     Route: 048
     Dates: start: 20080206
  5. SP [Suspect]
     Indication: DRUG USE FOR UNKNOWN INDICATION
     Dosage: ROUTE REPORTED AS OROPHARINGEAL. DOSE FORM REPORTED AS LOZENGE.
     Route: 050
     Dates: start: 20080206
  6. CALONAL [Suspect]
     Indication: DRUG USE FOR UNKNOWN INDICATION
     Dosage: ACETAMINOPHEN
     Route: 065
     Dates: start: 20080207

REACTIONS (1)
  - SUICIDAL IDEATION [None]
